FAERS Safety Report 19704618 (Version 1)
Quarter: 2021Q3

REPORT INFORMATION
  Report Type: Spontaneous
  Country: CA (occurrence: CA)
  Receive Date: 20210816
  Receipt Date: 20210816
  Transmission Date: 20211014
  Serious: Yes (Other)
  Sender: FDA-Public Use
  Company Number: CA-BRISTOL-MYERS SQUIBB COMPANY-BMS-2020-088695

PATIENT
  Age: 41 Year
  Sex: Male

DRUGS (1)
  1. DASATINIB. [Suspect]
     Active Substance: DASATINIB
     Indication: CHRONIC MYELOID LEUKAEMIA
     Dosage: 50 MILLIGRAM, QD
     Route: 065

REACTIONS (5)
  - Off label use [Unknown]
  - Loss of personal independence in daily activities [Recovered/Resolved]
  - General physical health deterioration [Unknown]
  - Pain [Recovered/Resolved]
  - Thrombocytopenia [Recovered/Resolved]
